FAERS Safety Report 8116881-4 (Version None)
Quarter: 2012Q1

REPORT INFORMATION
  Report Type: 
  Country: None (occurrence: None)
  Receive Date: 20120206
  Receipt Date: 20120127
  Transmission Date: 20120608
  Serious: Yes (Hospitalization)
  Sender: FDA-Public Use
  Company Number: US-ASTRAZENECA-2012SE05896

PATIENT
  Age: 20940 Day
  Sex: Male
  Weight: 86.6 kg

DRUGS (3)
  1. METHOTREXATE [Suspect]
     Indication: SMALL CELL LUNG CANCER STAGE UNSPECIFIED
     Dosage: 208 MG ON DAY 1, 2 AND 3 OF EVERY 21 DAYS CYCLE
     Route: 042
     Dates: start: 20111228, end: 20120118
  2. CARBOPLATIN [Suspect]
     Indication: SMALL CELL LUNG CANCER STAGE UNSPECIFIED
     Dosage: ON DAY1 OF EACH 21 DAYS CYCLE
     Route: 042
     Dates: start: 20111228, end: 20120118
  3. VANDETANIB [Suspect]
     Indication: SMALL CELL LUNG CANCER STAGE UNSPECIFIED
     Dosage: CYCLE 1
     Route: 048
     Dates: start: 20111228, end: 20120118

REACTIONS (3)
  - HYPONATRAEMIA [None]
  - DIZZINESS [None]
  - BALANCE DISORDER [None]
